FAERS Safety Report 6000289-1 (Version None)
Quarter: 2008Q4

REPORT INFORMATION
  Report Type: 
  Country: None (occurrence: None)
  Receive Date: 20081215
  Receipt Date: 20081203
  Transmission Date: 20090506
  Serious: Yes (Other)
  Sender: FDA-Public Use
  Company Number: GB-WYE-G02707008

PATIENT
  Sex: Female

DRUGS (4)
  1. EFFEXOR [Suspect]
     Route: 064
  2. FOLIC ACID [Concomitant]
     Dosage: UNKNOWN
     Route: 064
  3. SERTRALINE [Concomitant]
     Dosage: UNKNOWN
  4. FERROUS SULFATE TAB [Concomitant]
     Dosage: UNKNOWN
     Route: 064

REACTIONS (2)
  - DRUG EXPOSURE DURING PREGNANCY [None]
  - HAEMANGIOMA [None]
